FAERS Safety Report 5086144-2 (Version None)
Quarter: 2006Q3

REPORT INFORMATION
  Report Type: 
  Country: None (occurrence: None)
  Receive Date: 20060818
  Receipt Date: 20060807
  Transmission Date: 20061208
  Serious: Yes (Death, Other)
  Sender: FDA-Public Use
  Company Number: 2006096777

PATIENT
  Age: 69 Year
  Sex: Male

DRUGS (5)
  1. AMLODIPINE [Suspect]
     Indication: HYPERTENSION
     Dosage: 10 MG 10 MG, 1 IN 1 D), ORAL
     Route: 048
     Dates: start: 20060313
  2. ASPIRIN [Concomitant]
  3. CRESTOR [Concomitant]
  4. NITROGLYCERIN [Concomitant]
  5. RAMIPRIL [Concomitant]

REACTIONS (1)
  - MYOCARDIAL INFARCTION [None]
